FAERS Safety Report 6739910-9 (Version None)
Quarter: 2010Q2

REPORT INFORMATION
  Report Type: 
  Country: None (occurrence: None)
  Receive Date: 20100525
  Receipt Date: 20100517
  Transmission Date: 20101027
  Serious: Yes (Other)
  Sender: FDA-Public Use
  Company Number: US-PFIZER INC-2010056278

PATIENT
  Sex: Male

DRUGS (1)
  1. LIPITOR [Suspect]
     Dosage: UNK

REACTIONS (6)
  - AMNESIA [None]
  - EXOSTOSIS [None]
  - HAEMORRHAGE [None]
  - KNEE OPERATION [None]
  - SURGERY [None]
  - THROMBOSIS [None]
